FAERS Safety Report 25125781 (Version 1)
Quarter: 2025Q1

REPORT INFORMATION
  Report Type: Spontaneous
  Country: US (occurrence: US)
  Receive Date: 20250326
  Receipt Date: 20250326
  Transmission Date: 20250409
  Serious: Yes (Hospitalization)
  Sender: GALPHARM INTERNATIONAL
  Company Number: US-PERRIGO-25US003815

PATIENT

DRUGS (1)
  1. UNSPECIFIED INGREDIENT [Suspect]
     Active Substance: UNSPECIFIED INGREDIENT
     Indication: Product used for unknown indication
     Route: 048

REACTIONS (2)
  - Drug screen positive [Unknown]
  - Suspected product contamination [Unknown]
